FAERS Safety Report 8899516 (Version 1)
Quarter: 2012Q4

REPORT INFORMATION
  Report Type: 
  Country: US (occurrence: US)
  Receive Date: 20121108
  Receipt Date: 20121108
  Transmission Date: 20130627
  Serious: No
  Sender: FDA-Public Use
  Company Number: US-AMGEN-USASP2012026884

PATIENT
  Age: 63 Year
  Sex: Female

DRUGS (1)
  1. ENBREL [Suspect]
     Indication: RHEUMATOID ARTHRITIS
     Dosage: 50 mg, qwk
     Dates: start: 20010601, end: 20120418

REACTIONS (6)
  - Rheumatoid arthritis [Not Recovered/Not Resolved]
  - Gait disturbance [Not Recovered/Not Resolved]
  - Skin discolouration [Not Recovered/Not Resolved]
  - Antinuclear antibody increased [Not Recovered/Not Resolved]
  - Upper respiratory tract infection [Recovered/Resolved]
  - Bronchitis [Recovered/Resolved]
